FAERS Safety Report 14600101 (Version 1)
Quarter: 2018Q1

REPORT INFORMATION
  Report Type: Spontaneous
  Country: ES (occurrence: BR)
  Receive Date: 20180305
  Receipt Date: 20180305
  Transmission Date: 20180509
  Serious: Yes (Hospitalization, Other)
  Sender: FDA-Public Use
  Company Number: ES-SA-2018SA051742

PATIENT
  Age: 45 Year
  Sex: Male

DRUGS (5)
  1. PRIMAQUINE [Suspect]
     Active Substance: PRIMAQUINE PHOSPHATE
     Indication: PLASMODIUM VIVAX INFECTION
     Route: 065
     Dates: start: 201511
  2. PRIMAQUINE [Suspect]
     Active Substance: PRIMAQUINE PHOSPHATE
     Indication: PLASMODIUM VIVAX INFECTION
     Route: 065
     Dates: start: 2016
  3. PRIMAQUINE [Suspect]
     Active Substance: PRIMAQUINE PHOSPHATE
     Indication: PLASMODIUM VIVAX INFECTION
     Dosage: 3.2 MG PER KG
     Route: 065
  4. CHLOROQUINE. [Concomitant]
     Active Substance: CHLOROQUINE
     Indication: PLASMODIUM VIVAX INFECTION
     Dosage: 600 MG THE FIRST, 450 MG THE SECOND AND 450 MG THE THIRD DAY
     Route: 065
     Dates: start: 201511
  5. PRIMAQUINE [Suspect]
     Active Substance: PRIMAQUINE PHOSPHATE
     Indication: PLASMODIUM VIVAX INFECTION
     Route: 065
     Dates: start: 2016

REACTIONS (7)
  - Myalgia [Unknown]
  - Thrombocytopenia [Unknown]
  - Plasmodium vivax infection [Unknown]
  - Pyrexia [Unknown]
  - Malaria [Unknown]
  - Headache [Unknown]
  - Incorrect dose administered [Unknown]

NARRATIVE: CASE EVENT DATE: 2015
